FAERS Safety Report 6477708-X (Version None)
Quarter: 2009Q4

REPORT INFORMATION
  Report Type: 
  Country: None (occurrence: None)
  Receive Date: 20091207
  Receipt Date: 20091125
  Transmission Date: 20100525
  Serious: Yes (Death)
  Sender: FDA-Public Use
  Company Number: US-PFIZER INC-2009303806

PATIENT
  Age: 16 Year
  Sex: Male

DRUGS (3)
  1. ALPRAZOLAM [Suspect]
  2. METHADONE HCL [Suspect]
  3. OXYCODONE [Suspect]

REACTIONS (1)
  - INTENTIONAL DRUG MISUSE [None]
